FAERS Safety Report 4976812-2 (Version None)
Quarter: 2006Q2

REPORT INFORMATION
  Report Type: 
  Country: None (occurrence: None)
  Receive Date: 20060418
  Receipt Date: 20060418
  Transmission Date: 20061013
  Serious: Yes (Hospitalization, Other)
  Sender: FDA-Public Use
  Company Number: None

PATIENT
  Sex: Female
  Weight: 63.05 kg

DRUGS (3)
  1. EXJADE [Suspect]
     Indication: THALASSAEMIA
     Dosage: 1500MG   DAILY   PO;   1000MG   DAILY  PO
     Route: 048
     Dates: start: 20060310, end: 20060316
  2. EXJADE [Suspect]
     Indication: THALASSAEMIA
     Dosage: 1500MG   DAILY   PO;   1000MG   DAILY  PO
     Route: 048
     Dates: start: 20060316, end: 20060328
  3. CELEXA [Concomitant]

REACTIONS (6)
  - ABDOMINAL PAIN [None]
  - DIARRHOEA [None]
  - FATIGUE [None]
  - HEADACHE [None]
  - JAUNDICE [None]
  - NAUSEA [None]
